FAERS Safety Report 11860910 (Version 1)
Quarter: 2015Q4

REPORT INFORMATION
  Report Type: Report from Study
  Country: US (occurrence: US)
  Receive Date: 20151222
  Receipt Date: 20151222
  Transmission Date: 20160305
  Serious: Yes (Congenital Anomaly, Other)
  Sender: FDA-Public Use
  Company Number: US-PFIZER INC-2015450779

PATIENT

DRUGS (6)
  1. VALPROIC ACID. [Suspect]
     Active Substance: VALPROIC ACID
     Indication: SIMPLE PARTIAL SEIZURES
  2. CLONAZEPAM. [Suspect]
     Active Substance: CLONAZEPAM
     Indication: SIMPLE PARTIAL SEIZURES
  3. PHENYTOIN. [Suspect]
     Active Substance: PHENYTOIN
     Indication: SIMPLE PARTIAL SEIZURES
  4. CLONAZEPAM. [Suspect]
     Active Substance: CLONAZEPAM
     Indication: GENERALISED TONIC-CLONIC SEIZURE
     Dosage: UNK
     Route: 064
  5. PHENYTOIN. [Suspect]
     Active Substance: PHENYTOIN
     Indication: GENERALISED TONIC-CLONIC SEIZURE
     Dosage: UNK
     Route: 064
  6. VALPROIC ACID. [Suspect]
     Active Substance: VALPROIC ACID
     Indication: GENERALISED TONIC-CLONIC SEIZURE
     Dosage: UNK
     Route: 064

REACTIONS (7)
  - Dystonia [Unknown]
  - Congenital anomaly [Unknown]
  - Microcephaly [Unknown]
  - Maternal exposure during pregnancy [Unknown]
  - Dysmorphism [Unknown]
  - Strabismus [Unknown]
  - Atrial septal defect [Unknown]
